FAERS Safety Report 23629044 (Version 3)
Quarter: 2025Q1

REPORT INFORMATION
  Report Type: Spontaneous
  Country: PL (occurrence: PL)
  Receive Date: 20240313
  Receipt Date: 20250206
  Transmission Date: 20250409
  Serious: Yes (Hospitalization, Other)
  Sender: BAUSCH AND LOMB
  Company Number: PL-BAUSCH-BL-2024-003926

PATIENT
  Age: 24 Year
  Sex: Female

DRUGS (8)
  1. NIFEDIPINE [Suspect]
     Active Substance: NIFEDIPINE
     Indication: Pre-eclampsia
     Route: 065
  2. NIFEDIPINE [Suspect]
     Active Substance: NIFEDIPINE
     Route: 065
  3. METOPROLOL [Suspect]
     Active Substance: METOPROLOL
     Indication: Pre-eclampsia
     Route: 065
  4. METOPROLOL [Suspect]
     Active Substance: METOPROLOL
     Route: 065
  5. TACROLIMUS [Suspect]
     Active Substance: TACROLIMUS
     Indication: Immunosuppressant drug therapy
     Route: 065
  6. PREDNISONE [Suspect]
     Active Substance: PREDNISONE
     Indication: Immunosuppressant drug therapy
     Route: 065
  7. METHYLDOPA [Suspect]
     Active Substance: METHYLDOPA
     Indication: Pre-eclampsia
     Route: 065
  8. METHYLDOPA [Suspect]
     Active Substance: METHYLDOPA
     Route: 065

REACTIONS (4)
  - Pre-eclampsia [Recovered/Resolved]
  - HELLP syndrome [Recovered/Resolved]
  - Therapy non-responder [Unknown]
  - Maternal exposure during pregnancy [Unknown]
